FAERS Safety Report 25139365 (Version 7)
Quarter: 2025Q4

REPORT INFORMATION
  Report Type: Spontaneous
  Country: CA (occurrence: CA)
  Receive Date: 20250331
  Receipt Date: 20251118
  Transmission Date: 20260117
  Serious: Yes (Other)
  Sender: PFIZER
  Company Number: CA-PFIZER INC-202500064065

PATIENT
  Age: 72 Year
  Sex: Male

DRUGS (21)
  1. RUXIENCE [Suspect]
     Active Substance: RITUXIMAB-PVVR
     Indication: Granulomatosis with polyangiitis
     Dosage: 678 MG, WEEKLY, FOR 4 DOSES - HOSPITAL START
     Route: 042
     Dates: start: 20250311
  2. RUXIENCE [Suspect]
     Active Substance: RITUXIMAB-PVVR
     Indication: Rheumatoid arthritis
     Dosage: 678 MG, WEEKLY, FOR 4 DOSES - HOSPITAL START
     Route: 042
     Dates: start: 20250318
  3. RUXIENCE [Suspect]
     Active Substance: RITUXIMAB-PVVR
     Dosage: 678 MG (678 MG, WEEKLY)
     Route: 042
     Dates: start: 20250327, end: 20250327
  4. RUXIENCE [Suspect]
     Active Substance: RITUXIMAB-PVVR
     Dosage: 678 MG (678 MG, WEEKLY)
     Route: 042
     Dates: start: 20250327, end: 20250327
  5. RUXIENCE [Suspect]
     Active Substance: RITUXIMAB-PVVR
     Dosage: 678 MG, WEEKLY (FOR 4 DOSES - HOSPITAL START)
     Route: 042
     Dates: start: 20250403, end: 20250403
  6. RUXIENCE [Suspect]
     Active Substance: RITUXIMAB-PVVR
     Dosage: 678 MG, WEEKLY (FOR 4 DOSES - HOSPITAL START)
     Route: 042
     Dates: start: 20250403, end: 20250403
  7. RUXIENCE [Suspect]
     Active Substance: RITUXIMAB-PVVR
     Dosage: 678 MG, WEEKLY (FOR 4 DOSES - HOSPITAL START)
     Route: 042
     Dates: start: 20250403, end: 20250403
  8. RUXIENCE [Suspect]
     Active Substance: RITUXIMAB-PVVR
     Dosage: SUBSEQUENT DAY 1 (2 DOSES 2 WEEKS APART)
     Dates: start: 20251112
  9. ACETAMINOPHEN [Concomitant]
     Active Substance: ACETAMINOPHEN
     Indication: Premedication
     Dosage: UNK
     Dates: start: 20250327, end: 20250327
  10. AMLODIPINE [Concomitant]
     Active Substance: AMLODIPINE BESYLATE
     Indication: Blood pressure abnormal
     Dosage: UNK, INCREASED
  11. AVACOPAN [Concomitant]
     Active Substance: AVACOPAN
     Dosage: UNK
  12. BENADRYL [Concomitant]
     Active Substance: DIPHENHYDRAMINE HYDROCHLORIDE
     Indication: Premedication
     Dosage: UNK
     Dates: start: 20250403, end: 20250403
  13. DIPHENHYDRAMINE [Concomitant]
     Active Substance: DIPHENHYDRAMINE
     Indication: Premedication
     Dosage: UNK
     Dates: start: 20250327, end: 20250327
  14. METHYLPREDNISOLONE [Concomitant]
     Active Substance: METHYLPREDNISOLONE
     Indication: Premedication
     Dosage: UNK
     Dates: start: 20250327, end: 20250327
  15. PREDNISONE [Concomitant]
     Active Substance: PREDNISONE
     Indication: Polymyalgia rheumatica
     Dosage: UNK (AT 50 MG DAILY, WITH A TAPER)
     Dates: start: 202501
  16. PREDNISONE [Concomitant]
     Active Substance: PREDNISONE
     Dosage: 65 MG
  17. SEPTRA [Concomitant]
     Active Substance: SULFAMETHOXAZOLE\TRIMETHOPRIM
     Indication: Prophylaxis
     Dosage: UNK
  18. SOLU-MEDROL [Concomitant]
     Active Substance: METHYLPREDNISOLONE SODIUM SUCCINATE
     Indication: Premedication
     Dosage: UNK
     Dates: start: 20250403, end: 20250403
  19. TERAZOSIN [Concomitant]
     Active Substance: TERAZOSIN HYDROCHLORIDE
     Indication: Blood pressure abnormal
     Dosage: UNK
  20. TYLENOL [Concomitant]
     Active Substance: ACETAMINOPHEN
     Indication: Premedication
     Dosage: UNK
     Dates: start: 20250403, end: 20250403
  21. VITAMIN D NOS [Concomitant]
     Active Substance: CHOLECALCIFEROL\ERGOCALCIFEROL
     Dosage: UNK

REACTIONS (6)
  - Inappropriate antidiuretic hormone secretion [Unknown]
  - Hyponatraemia [Recovering/Resolving]
  - Abscess limb [Unknown]
  - Staphylococcal skin infection [Unknown]
  - Blood pressure fluctuation [Recovered/Resolved]
  - Inappropriate schedule of product administration [Unknown]

NARRATIVE: CASE EVENT DATE: 20250301
